FAERS Safety Report 4318812-1 (Version None)
Quarter: 2004Q1

REPORT INFORMATION
  Report Type: 
  Country: None (occurrence: None)
  Receive Date: 20040318
  Receipt Date: 20040304
  Transmission Date: 20041129
  Serious: Yes (Death)
  Sender: FDA-Public Use
  Company Number: FR-GLAXOSMITHKLINE-B0326579A

PATIENT
  Age: 85 Year
  Sex: Female

DRUGS (1)
  1. SERETIDE [Suspect]
     Indication: CHRONIC OBSTRUCTIVE AIRWAYS DISEASE
     Dosage: 2PUFF TWICE PER DAY
     Route: 055
     Dates: start: 19991201

REACTIONS (4)
  - DEATH [None]
  - DRY SKIN [None]
  - HYPERCORTICOIDISM [None]
  - SKIN ATROPHY [None]
